FAERS Safety Report 10152496 (Version 1)
Quarter: 2014Q2

REPORT INFORMATION
  Report Type: Spontaneous
  Country: US (occurrence: US)
  Receive Date: 20140505
  Receipt Date: 20140505
  Transmission Date: 20141212
  Serious: Yes (Other)
  Sender: FDA-Public Use
  Company Number: US-TEVA-478834USA

PATIENT
  Age: 27 Year
  Sex: Female

DRUGS (1)
  1. COPAXONE [Suspect]
     Indication: MULTIPLE SCLEROSIS
     Dates: start: 2007, end: 2010

REACTIONS (9)
  - Injection site atrophy [Unknown]
  - Weight decreased [Unknown]
  - Chest pain [Unknown]
  - Contusion [Unknown]
  - Injection site urticaria [Unknown]
  - Peau d^orange [Unknown]
  - Injection site pain [Unknown]
  - Fatigue [Unknown]
  - Fatigue [Unknown]
